FAERS Safety Report 7383900-2 (Version None)
Quarter: 2011Q1

REPORT INFORMATION
  Report Type: 
  Country: None (occurrence: None)
  Receive Date: 20110330
  Receipt Date: 20101214
  Transmission Date: 20110831
  Serious: No
  Sender: FDA-Public Use
  Company Number: US-MYLANLABS-2010S1023036

PATIENT
  Sex: Female

DRUGS (4)
  1. RANITIDINE [Concomitant]
     Indication: GASTROOESOPHAGEAL REFLUX DISEASE
     Route: 048
  2. RISPERIDONE [Suspect]
     Route: 048
     Dates: start: 20100101, end: 20100101
  3. LISINOPRIL [Concomitant]
     Indication: BLOOD PRESSURE INCREASED
     Route: 048
  4. PHENOBARBITAL [Concomitant]
     Indication: BRAIN NEOPLASM
     Route: 048

REACTIONS (3)
  - MUSCLE SPASMS [None]
  - CHEST PAIN [None]
  - HEADACHE [None]
